FAERS Safety Report 10230744 (Version 1)
Quarter: 2014Q2

REPORT INFORMATION
  Report Type: Spontaneous
  Country: BR (occurrence: BR)
  Receive Date: 20140611
  Receipt Date: 20140611
  Transmission Date: 20141212
  Serious: Yes (Other)
  Sender: FDA-Public Use
  Company Number: BR-PFIZER INC-2014158666

PATIENT
  Age: 53 Year
  Sex: Female
  Weight: 60 kg

DRUGS (4)
  1. FRONTAL [Suspect]
     Indication: AFFECTIVE DISORDER
     Dosage: ONE UNIT (2 MG), 3X/DAY
     Route: 048
     Dates: start: 20080409, end: 2011
  2. LYRICA [Suspect]
     Indication: FIBROMYALGIA
     Dosage: 150 MG, DAILY
     Route: 048
     Dates: start: 20090606
  3. LYRICA [Suspect]
     Dosage: 75 MG, ONCE A DAY AS NEEDED
     Route: 048
  4. ALPRAZOLAM [Concomitant]
     Indication: ANXIETY
     Dosage: 2 MG, 2X/DAY (IN THE MORNING AND AT NIGHT)
     Dates: start: 2005

REACTIONS (2)
  - Depression [Not Recovered/Not Resolved]
  - Panic disorder [Unknown]
